FAERS Safety Report 4656042-4 (Version None)
Quarter: 2005Q2

REPORT INFORMATION
  Report Type: 
  Country: None (occurrence: None)
  Receive Date: 20050506
  Receipt Date: 20050425
  Transmission Date: 20051028
  Serious: Yes (Other)
  Sender: FDA-Public Use
  Company Number: 2005065225

PATIENT
  Sex: Male
  Weight: 86.1834 kg

DRUGS (1)
  1. LISTERINE  ANTISEPTIC  MOUTHWASH (MENTHYL SALICYLATE, EUCALYPTOL, THYM [Suspect]
     Indication: POISONING
     Dosage: ORAL
     Route: 048

REACTIONS (1)
  - ALCOHOL POISONING [None]
